FAERS Safety Report 8442248-5 (Version None)
Quarter: 2012Q2

REPORT INFORMATION
  Report Type: 
  Country: None (occurrence: None)
  Receive Date: 20120615
  Receipt Date: 20111019
  Transmission Date: 20120825
  Serious: Yes (Other)
  Sender: FDA-Public Use
  Company Number: CH-BAXTER-2011BH033462

PATIENT
  Sex: Male
  Weight: 2.95 kg

DRUGS (9)
  1. EPIRUBICIN HYDROCHLORIDE [Suspect]
     Route: 064
     Dates: start: 20110809, end: 20110809
  2. EPIRUBICIN HYDROCHLORIDE [Suspect]
     Route: 064
     Dates: start: 20110718, end: 20110718
  3. FLUOROURACIL [Suspect]
     Route: 064
     Dates: start: 20110809, end: 20110809
  4. EMEND [Suspect]
     Route: 064
     Dates: start: 20110718, end: 20110720
  5. ALOXI [Suspect]
     Route: 064
     Dates: start: 20110809, end: 20110809
  6. ALOXI [Suspect]
     Route: 064
     Dates: start: 20110718, end: 20110718
  7. FLUOROURACIL [Suspect]
     Route: 064
     Dates: start: 20110718, end: 20110718
  8. CYCLOPHOSPHAMIDE [Suspect]
     Route: 064
     Dates: start: 20110718, end: 20110718
  9. CYCLOPHOSPHAMIDE [Suspect]
     Route: 064
     Dates: start: 20110809, end: 20110809

REACTIONS (1)
  - FOETAL EXPOSURE DURING PREGNANCY [None]
